FAERS Safety Report 5521894-2 (Version None)
Quarter: 2007Q4

REPORT INFORMATION
  Report Type: 
  Country: None (occurrence: None)
  Receive Date: 20071120
  Receipt Date: 20071105
  Transmission Date: 20080405
  Serious: Yes (Other)
  Sender: FDA-Public Use
  Company Number: PT-GENENTECH-251166

PATIENT
  Age: 37 Year
  Sex: Male

DRUGS (4)
  1. AVASTIN [Suspect]
     Indication: COLON CANCER
     Dosage: 5 MG/KG, Q15
  2. FLUOROURACIL [Concomitant]
     Indication: COLON CANCER
  3. FOLINIC ACID [Concomitant]
     Indication: COLON CANCER
  4. IRINOTECAN HCL [Concomitant]
     Indication: COLON CANCER

REACTIONS (1)
  - EPILEPSY [None]
